FAERS Safety Report 23357315 (Version 1)
Quarter: 2024Q1

REPORT INFORMATION
  Report Type: Report from Study
  Country: US (occurrence: US)
  Receive Date: 20240102
  Receipt Date: 20240102
  Transmission Date: 20240409
  Serious: Yes (Hospitalization)
  Sender: FDA-Public Use
  Company Number: US-BAYER-2023A183521

PATIENT
  Age: 68 Year
  Sex: Male

DRUGS (1)
  1. XOFIGO [Suspect]
     Active Substance: RADIUM RA-223 DICHLORIDE
     Indication: Hormone-refractory prostate cancer
     Dosage: 135.90 UCI, EVERY 28 DAYS
     Route: 042
     Dates: start: 20230720, end: 20230720

REACTIONS (2)
  - Pneumonia [Unknown]
  - Adverse drug reaction [Unknown]
